FAERS Safety Report 4630218-4 (Version None)
Quarter: 2005Q2

REPORT INFORMATION
  Report Type: 
  Country: None (occurrence: None)
  Receive Date: 20050406
  Receipt Date: 20050321
  Transmission Date: 20051028
  Serious: Yes (Hospitalization)
  Sender: FDA-Public Use
  Company Number: FR_050205913

PATIENT
  Age: 39 Year
  Sex: Female
  Weight: 72 kg

DRUGS (4)
  1. ZYPREXA [Suspect]
     Indication: SCHIZOPHRENIA
     Dates: start: 20041222
  2. PRAXINOR [Concomitant]
  3. PARKINANE (TRIHEXYPHENIDYL HYDROCHLORIDE) [Concomitant]
  4. HAVLANE (LOPRAZOLAM MESILATE) [Concomitant]

REACTIONS (3)
  - GUILLAIN-BARRE SYNDROME [None]
  - INFLUENZA [None]
  - PARESIS [None]
